FAERS Safety Report 9189188 (Version 2)
Quarter: 2013Q2

REPORT INFORMATION
  Report Type: Spontaneous
  Country: US (occurrence: US)
  Receive Date: 20130326
  Receipt Date: 20130418
  Transmission Date: 20140414
  Serious: Yes (Hospitalization)
  Sender: FDA-Public Use
  Company Number: US-GE HEALTHCARE MEDICAL DIAGNOSTICS-OMPQ-PR-1303S-0368

PATIENT
  Age: 69 Year
  Sex: Male

DRUGS (10)
  1. OMNIPAQUE [Suspect]
     Indication: LUMBAR RADICULOPATHY
     Route: 037
     Dates: start: 20130313, end: 20130313
  2. OMNIPAQUE [Suspect]
     Indication: DIAGNOSTIC PROCEDURE
  3. METFORMIN [Concomitant]
  4. PRADAXA [Concomitant]
  5. ALLOPURINOL [Concomitant]
  6. MS CONTIN [Concomitant]
  7. ROXICODONE [Concomitant]
  8. ATIVAN [Concomitant]
  9. XALATAN [Concomitant]
  10. TIKOSYN [Concomitant]

REACTIONS (2)
  - Meningitis bacterial [Unknown]
  - Headache [Unknown]
